FAERS Safety Report 23405358 (Version 1)
Quarter: 2024Q1

REPORT INFORMATION
  Report Type: Spontaneous
  Country: CA (occurrence: CA)
  Receive Date: 20240116
  Receipt Date: 20240116
  Transmission Date: 20240410
  Serious: Yes (Other)
  Sender: FDA-Public Use
  Company Number: CA-VIIV HEALTHCARE LIMITED-CA2023064767

PATIENT
  Age: 60 Year
  Sex: Male

DRUGS (2)
  1. RILPIVIRINE [Suspect]
     Active Substance: RILPIVIRINE
     Indication: HIV infection
     Dosage: UNK UNK, Q2M (600MG/3ML) CABOTEGRAVIR AND (900MG/3ML) RILPIVIRINE INJECTION, UNK UNK, Q2M (600MG/3ML
     Route: 030
     Dates: start: 20220601
  2. CABOTEGRAVIR [Suspect]
     Active Substance: CABOTEGRAVIR
     Indication: HIV infection
     Dosage: UNK UNK, Q2M (600MG/3ML) CABOTEGRAVIR AND (900MG/3ML) RILPIVIRINE INJECTION, UNK UNK, Q2M (600MG/3ML
     Route: 030
     Dates: start: 20220601

REACTIONS (2)
  - Coronary artery bypass [Recovering/Resolving]
  - Rhinitis [Unknown]

NARRATIVE: CASE EVENT DATE: 20230309
